FAERS Safety Report 9745402 (Version 1)
Quarter: 2013Q4

REPORT INFORMATION
  Report Type: Spontaneous
  Country: US (occurrence: None)
  Receive Date: 20131204
  Receipt Date: 20131204
  Transmission Date: 20140711
  Serious: Yes (Other)
  Sender: FDA-Public Use
  Company Number: ADR-2013-02178

PATIENT
  Sex: Female

DRUGS (1)
  1. BACLOFEN [Suspect]
     Dates: start: 20131125

REACTIONS (1)
  - Hypoaesthesia [None]
